FAERS Safety Report 20126452 (Version 1)
Quarter: 2021Q4

REPORT INFORMATION
  Report Type: Spontaneous
  Country: BG (occurrence: BG)
  Receive Date: 20211129
  Receipt Date: 20211129
  Transmission Date: 20220303
  Serious: Yes (Other)
  Sender: FDA-Public Use
  Company Number: BG-009507513-2109BGR006125

PATIENT
  Age: 57 Year
  Sex: Male

DRUGS (3)
  1. CISPLATIN [Suspect]
     Active Substance: CISPLATIN
     Indication: Lung adenocarcinoma
     Dosage: 75 MILLIGRAM/SQ. METER
     Dates: start: 202005
  2. PEMETREXED [Suspect]
     Active Substance: PEMETREXED
     Indication: Lung adenocarcinoma
     Dosage: 500 MILLIGRAM/SQ. METER
     Dates: start: 202005, end: 202012
  3. KEYTRUDA [Suspect]
     Active Substance: PEMBROLIZUMAB
     Indication: Lung adenocarcinoma
     Dosage: 200 MILLIGRAM
     Dates: start: 202005, end: 202012

REACTIONS (3)
  - Metabolic disorder [Unknown]
  - Tumour pseudoprogression [Unknown]
  - Product use issue [Unknown]

NARRATIVE: CASE EVENT DATE: 20200801
